FAERS Safety Report 11296853 (Version 1)
Quarter: 2015Q3

REPORT INFORMATION
  Report Type: Spontaneous
  Country: US (occurrence: US)
  Receive Date: 20150722
  Receipt Date: 20150722
  Transmission Date: 20151125
  Serious: No
  Sender: FDA-Public Use
  Company Number: US-ELI_LILLY_AND_COMPANY-US201009005218

PATIENT
  Sex: Female
  Weight: 56.69 kg

DRUGS (5)
  1. EFFIENT [Suspect]
     Active Substance: PRASUGREL HYDROCHLORIDE
     Indication: STENT PLACEMENT
     Dosage: 5 MG, DAILY (1/D)
     Dates: start: 20100623
  2. VEROLIN [Concomitant]
     Indication: SUPRAVENTRICULAR TACHYCARDIA
     Dosage: 200 MG, UNK
  3. PRILOSEC [Concomitant]
     Active Substance: OMEPRAZOLE MAGNESIUM
  4. VERAPAMIL [Concomitant]
     Active Substance: VERAPAMIL HYDROCHLORIDE
  5. ASPIRIN. [Concomitant]
     Active Substance: ASPIRIN

REACTIONS (8)
  - Adverse drug reaction [Unknown]
  - Abdominal discomfort [Unknown]
  - Oral disorder [Unknown]
  - Weight decreased [Unknown]
  - Dry mouth [Unknown]
  - Pain in jaw [Unknown]
  - Platelet aggregation inhibition [Unknown]
  - Contusion [Unknown]
